FAERS Safety Report 22520394 (Version 1)
Quarter: 2023Q2

REPORT INFORMATION
  Report Type: Spontaneous
  Country: CA (occurrence: CA)
  Receive Date: 20230605
  Receipt Date: 20230605
  Transmission Date: 20230722
  Serious: Yes (Death)
  Sender: FDA-Public Use
  Company Number: CA-FreseniusKabi-FK202307547

PATIENT
  Age: 80 Year
  Sex: Female

DRUGS (3)
  1. MIDAZOLAM HYDROCHLORIDE [Suspect]
     Active Substance: MIDAZOLAM HYDROCHLORIDE
     Indication: Product used for unknown indication
     Dosage: FORM OF ADMIN. SOLUTION INTRAMUSCULAR
     Route: 065
  2. SCOPOLAMINE [Suspect]
     Active Substance: SCOPOLAMINE
     Indication: Product used for unknown indication
     Dosage: FORM OF ADMIN. NOT SPECIFIED
  3. DILAUDID [Suspect]
     Active Substance: HYDROMORPHONE HYDROCHLORIDE
     Indication: Product used for unknown indication
     Dosage: FORM OF ADMIN. NOT SPECIFIED

REACTIONS (2)
  - Accidental death [Fatal]
  - Accidental overdose [Fatal]
